FAERS Safety Report 23421514 (Version 1)
Quarter: 2024Q1

REPORT INFORMATION
  Report Type: Spontaneous
  Country: US (occurrence: None)
  Receive Date: 20240118
  Receipt Date: 20240118
  Transmission Date: 20240410
  Serious: Yes (Hospitalization)
  Sender: FDA-Public Use
  Company Number: None

PATIENT
  Sex: Female

DRUGS (9)
  1. HUMIRA [Suspect]
     Active Substance: ADALIMUMAB
     Indication: Rheumatoid arthritis
     Dosage: OTHER QUANTITY : 40MG/0.4ML;?FREQUENCY : AS DIRECTED;?
     Route: 058
     Dates: start: 20190329
  2. AMLODIPINE TAB [Concomitant]
  3. DICYCLOMINE CAP [Concomitant]
  4. HYDROCHLOROT TAB [Concomitant]
  5. NEURONTIN TAB [Concomitant]
  6. OMEPRAZOLE SODIUM [Concomitant]
     Active Substance: OMEPRAZOLE SODIUM
  7. ONDANSETRON INJ [Concomitant]
  8. TRAMADOL HCL [Concomitant]
     Active Substance: TRAMADOL HYDROCHLORIDE
  9. TRIAMT/HCTZ TAB [Concomitant]

REACTIONS (5)
  - Urinary tract infection [None]
  - Seizure [None]
  - Clostridium difficile infection [None]
  - COVID-19 [None]
  - Therapy interrupted [None]
